FAERS Safety Report 4362953-X (Version None)
Quarter: 2004Q2

REPORT INFORMATION
  Report Type: 
  Country: None (occurrence: None)
  Receive Date: 20040524
  Receipt Date: 20040223
  Transmission Date: 20050107
  Serious: Yes (Disabling)
  Sender: FDA-Public Use
  Company Number: IE-BRISTOL-MYERS SQUIBB COMPANY-12515243

PATIENT
  Age: 60 Year
  Sex: Female
  Weight: 51 kg

DRUGS (3)
  1. MODECATE INJ 25 MG/ML [Suspect]
     Route: 030
     Dates: start: 19990401, end: 20040501
  2. KEMADRIN [Concomitant]
     Route: 048
  3. AMITRIPTYLINE HCL [Concomitant]
     Dosage: ^FOR MANY YEARS^
     Route: 048

REACTIONS (1)
  - ALOPECIA [None]
